FAERS Safety Report 7475833-8 (Version None)
Quarter: 2011Q2

REPORT INFORMATION
  Report Type: 
  Country: None (occurrence: None)
  Receive Date: 20110512
  Receipt Date: 20110509
  Transmission Date: 20111010
  Serious: Yes (Hospitalization)
  Sender: FDA-Public Use
  Company Number: GB-ABBOTT-11P-167-0724694-00

PATIENT
  Sex: Male

DRUGS (2)
  1. HUMIRA [Suspect]
     Indication: CROHN'S DISEASE
     Dates: end: 20090904
  2. HUMIRA [Suspect]
     Dates: start: 20110303

REACTIONS (2)
  - CEREBROVASCULAR ACCIDENT [None]
  - NEUROLOGICAL SYMPTOM [None]
